FAERS Safety Report 7449007-0 (Version None)
Quarter: 2011Q2

REPORT INFORMATION
  Report Type: 
  Country: None (occurrence: None)
  Receive Date: 20110429
  Receipt Date: 20110421
  Transmission Date: 20111010
  Serious: Yes (Hospitalization, Disabling)
  Sender: FDA-Public Use
  Company Number: US-MERCK-0910USA01555

PATIENT
  Age: 67 Year
  Sex: Female
  Weight: 55 kg

DRUGS (17)
  1. CALCIUM (UNSPECIFIED) AND VITAMIN D (UNSPECIFIED) [Concomitant]
     Route: 048
     Dates: start: 19830101
  2. CYANOCOBALAMIN [Concomitant]
     Route: 065
  3. PREMARIN [Concomitant]
     Dosage: 1.2 APPLICATOR VAGINALLY
     Route: 067
  4. LEVOTHYROXINE SODIUM [Concomitant]
     Route: 065
  5. ELAVIL [Concomitant]
     Route: 048
  6. OMEGA-3 MARINE TRIGLYCERIDES [Concomitant]
     Route: 065
     Dates: start: 20000101
  7. FOSAMAX [Suspect]
     Dosage: A.M
     Route: 048
     Dates: end: 20061108
  8. FOSAMAX [Suspect]
     Indication: OSTEOPENIA
     Dosage: A.M
     Route: 048
     Dates: start: 20010101, end: 20090729
  9. LOTENSIN HCT [Concomitant]
     Route: 048
  10. ZOCOR [Concomitant]
     Route: 048
  11. VAGIFEM [Concomitant]
     Route: 067
  12. FOSAMAX [Suspect]
     Dosage: A.M
     Route: 048
     Dates: end: 20061108
  13. ASPIRIN [Concomitant]
     Route: 065
     Dates: start: 20070101
  14. FOSAMAX [Suspect]
     Indication: OSTEOPOROSIS
     Dosage: A.M
     Route: 048
     Dates: start: 20010101, end: 20090729
  15. NIACIN [Concomitant]
     Route: 048
     Dates: start: 20050101
  16. DILAUDID [Concomitant]
     Route: 065
  17. VITAMINS (UNSPECIFIED) [Concomitant]
     Route: 048
     Dates: start: 20000101

REACTIONS (16)
  - ABDOMINAL DISCOMFORT [None]
  - MENISCUS LESION [None]
  - PAIN IN EXTREMITY [None]
  - JOINT EFFUSION [None]
  - ILIOTIBIAL BAND SYNDROME [None]
  - ARTHRITIS [None]
  - PATELLOFEMORAL PAIN SYNDROME [None]
  - FALL [None]
  - ARTHRALGIA [None]
  - FRACTURE DELAYED UNION [None]
  - RHINITIS ALLERGIC [None]
  - NAUSEA [None]
  - DIARRHOEA [None]
  - FEMUR FRACTURE [None]
  - ANXIETY [None]
  - INTERVERTEBRAL DISC PROTRUSION [None]
